FAERS Safety Report 15982391 (Version 1)
Quarter: 2019Q1

REPORT INFORMATION
  Report Type: Spontaneous
  Country: US (occurrence: US)
  Receive Date: 20190219
  Receipt Date: 20190219
  Transmission Date: 20190418
  Serious: No
  Sender: FDA-Public Use
  Company Number: US-ENDO PHARMACEUTICALS INC-2018-025848

PATIENT
  Age: 59 Year
  Sex: Male
  Weight: 83.9 kg

DRUGS (1)
  1. XIAFLEX [Suspect]
     Active Substance: COLLAGENASE CLOSTRIDIUM HISTOLYTICUM
     Indication: DUPUYTREN^S CONTRACTURE
     Dosage: TWO INJECTIONS
     Route: 026
     Dates: start: 20171218, end: 20171218

REACTIONS (5)
  - Injection site swelling [Recovering/Resolving]
  - Inflammation [Recovering/Resolving]
  - Contusion [Recovered/Resolved]
  - Generalised oedema [Not Recovered/Not Resolved]
  - Discomfort [Not Recovered/Not Resolved]

NARRATIVE: CASE EVENT DATE: 201712
